FAERS Safety Report 6255315-1 (Version None)
Quarter: 2009Q3

REPORT INFORMATION
  Report Type: 
  Country: None (occurrence: None)
  Receive Date: 20090702
  Receipt Date: 20090625
  Transmission Date: 20100115
  Serious: Yes (Death, Hospitalization)
  Sender: FDA-Public Use
  Company Number: FR-JNJFOC-20090609128

PATIENT
  Sex: Male

DRUGS (7)
  1. DURAGESIC-100 [Suspect]
     Indication: DRUG USE FOR UNKNOWN INDICATION
     Route: 003
     Dates: start: 20090414, end: 20090512
  2. SCOPODERM [Suspect]
     Indication: DRUG USE FOR UNKNOWN INDICATION
     Route: 003
     Dates: start: 20090306, end: 20090512
  3. ACTISKENAN [Suspect]
     Indication: DRUG USE FOR UNKNOWN INDICATION
     Route: 048
     Dates: start: 20090217, end: 20090512
  4. NEXIUM [Suspect]
     Indication: OESOPHAGITIS
     Route: 042
     Dates: start: 20090413, end: 20090420
  5. SOLU-MEDROL [Suspect]
     Indication: DECREASED APPETITE
     Route: 042
     Dates: start: 20090413, end: 20090512
  6. ATARAX [Suspect]
     Indication: INSOMNIA
     Route: 042
     Dates: start: 20090413, end: 20090512
  7. DEROXAT [Suspect]
     Indication: DEPRESSION
     Route: 048
     Dates: start: 20090412, end: 20090512

REACTIONS (2)
  - DEATH [None]
  - THROMBOCYTOPENIA [None]
